FAERS Safety Report 22282985 (Version 2)
Quarter: 2023Q2

REPORT INFORMATION
  Report Type: Report from Study
  Country: BE (occurrence: BE)
  Receive Date: 20230504
  Receipt Date: 20230612
  Transmission Date: 20230721
  Serious: Yes (Hospitalization)
  Sender: FDA-Public Use
  Company Number: BE-002147023-NVSC2023BE098749

PATIENT
  Age: 81 Year
  Sex: Female

DRUGS (22)
  1. KISQALI [Suspect]
     Active Substance: RIBOCICLIB
     Indication: Hormone receptor positive HER2 negative breast cancer
     Dosage: 400 MG
     Route: 065
     Dates: start: 20200301, end: 20220902
  2. BETAHISTINE [Concomitant]
     Active Substance: BETAHISTINE
     Indication: Product used for unknown indication
     Dosage: 16 MG, QD, (8U)
     Route: 065
  3. BISOPROLOL [Concomitant]
     Active Substance: BISOPROLOL
     Indication: Product used for unknown indication
     Dosage: 10 MG, QD, (8U)
     Route: 065
  4. BUMETANIDE [Concomitant]
     Active Substance: BUMETANIDE
     Indication: Product used for unknown indication
     Dosage: 0.5 MG, QD, (8U)
     Route: 065
  5. CORDARONE [Concomitant]
     Active Substance: AMIODARONE HYDROCHLORIDE
     Indication: Product used for unknown indication
     Dosage: 200 MG, QD, (8U)
     Route: 065
  6. FLUPENTIXOL DIHYDROCHLORIDE\MELITRACEN HYDROCHLORIDE [Concomitant]
     Active Substance: FLUPENTIXOL DIHYDROCHLORIDE\MELITRACEN HYDROCHLORIDE
     Indication: Product used for unknown indication
     Dosage: 1 DOSAGE FORM, QD, (8U) (STRENGTH: 10-0.5MG)
     Route: 065
  7. DESLORATADINE [Concomitant]
     Active Substance: DESLORATADINE
     Indication: Product used for unknown indication
     Dosage: 5 MG, QD, (17U)
     Route: 065
  8. FENTANYL [Concomitant]
     Active Substance: FENTANYL
     Indication: Product used for unknown indication
     Dosage: 1 DOSAGE FORM, (1 TIME EVERY THREE DAYS, 8U)
     Route: 065
  9. EPREX [Concomitant]
     Active Substance: ERYTHROPOIETIN
     Indication: Product used for unknown indication
     Dosage: 40000 E, Q4W, (8U)
     Route: 058
  10. DAPAGLIFLOZIN [Concomitant]
     Active Substance: DAPAGLIFLOZIN
     Indication: Product used for unknown indication
     Dosage: 10 MG, QD, (8U)
     Route: 065
  11. LISINOPRIL [Concomitant]
     Active Substance: LISINOPRIL
     Indication: Product used for unknown indication
     Dosage: 2.5 MG, QD, (8U)
     Route: 065
  12. EDOXABAN TOSYLATE [Concomitant]
     Active Substance: EDOXABAN TOSYLATE
     Indication: Product used for unknown indication
     Dosage: 30 MG, QD, (8U)
     Route: 065
  13. LEVOTHYROXINE SODIUM [Concomitant]
     Active Substance: LEVOTHYROXINE SODIUM
     Indication: Product used for unknown indication
     Dosage: 75 UG, QD, (8U)
     Route: 065
  14. MAGISTRAL [Concomitant]
     Indication: Product used for unknown indication
     Dosage: 1 DOSAGE FORM, QD, (STRENGTH: 500 MG)
     Route: 065
  15. MAGISTRAL [Concomitant]
     Dosage: 1 DOSAGE FORM, BID, (STRENGTH: 10 MG)
     Route: 065
  16. MIRTAZAPINE [Concomitant]
     Active Substance: MIRTAZAPINE
     Indication: Product used for unknown indication
     Dosage: 15 MG, QD, (8U)
     Route: 065
  17. MOVICOL [Concomitant]
     Active Substance: POLYETHYLENE GLYCOL 3350\POTASSIUM CHLORIDE\SODIUM BICARBONATE\SODIUM CHLORIDE
     Indication: Product used for unknown indication
     Dosage: 1 DOSAGE FORM, Q3W, (SACHET)
     Route: 065
  18. OXYCODONE HYDROCHLORIDE [Concomitant]
     Active Substance: OXYCODONE HYDROCHLORIDE
     Indication: Pain
     Dosage: 5 MG, Q3W, (MAX 3)
     Route: 065
  19. PANTOMED [Concomitant]
     Indication: Product used for unknown indication
     Dosage: 20 MG, BID, (8U 18 U)
     Route: 065
  20. SPIRONOLACTONE [Concomitant]
     Active Substance: SPIRONOLACTONE
     Indication: Product used for unknown indication
     Dosage: 12.5 MG, Q3W, (8U)
     Route: 065
  21. FERROUS SULFATE [Concomitant]
     Active Substance: FERROUS SULFATE
     Indication: Product used for unknown indication
     Dosage: 80 MG, QD, (8U)
     Route: 065
  22. XGEVA [Concomitant]
     Active Substance: DENOSUMAB
     Indication: Product used for unknown indication
     Dosage: 1 DOSAGE FORM, QMO
     Route: 058

REACTIONS (2)
  - Pancytopenia [Unknown]
  - Tumour marker increased [Unknown]
